FAERS Safety Report 16534327 (Version 1)
Quarter: 2019Q3

REPORT INFORMATION
  Report Type: Report from Study
  Country: AU (occurrence: AU)
  Receive Date: 20190705
  Receipt Date: 20190705
  Transmission Date: 20191004
  Serious: Yes (Other)
  Sender: FDA-Public Use
  Company Number: AU-GLAXOSMITHKLINE-AU2019GSK118910

PATIENT
  Sex: Male
  Weight: 64 kg

DRUGS (2)
  1. INFLUENZA VACCINE [Suspect]
     Active Substance: INFLUENZA VIRUS VACCINE
     Indication: PROPHYLAXIS
  2. SALBUTAMOL SULPHATE [Suspect]
     Active Substance: ALBUTEROL SULFATE
     Indication: CHRONIC OBSTRUCTIVE PULMONARY DISEASE
     Dosage: UNK,(100MCG)
     Route: 055

REACTIONS (3)
  - Drug ineffective [Not Recovered/Not Resolved]
  - Chronic obstructive pulmonary disease [Unknown]
  - Bronchiectasis [Unknown]
